FAERS Safety Report 4685972-2 (Version None)
Quarter: 2005Q2

REPORT INFORMATION
  Report Type: 
  Country: None (occurrence: None)
  Receive Date: 20050607
  Receipt Date: 20050607
  Transmission Date: 20051028
  Serious: No
  Sender: FDA-Public Use
  Company Number: None

PATIENT
  Sex: Female
  Weight: 45.9 kg

DRUGS (3)
  1. DOCETAXEL [Suspect]
     Dosage: 60 MG/M2 DAY 1, EVERY 21 DAYS
     Dates: start: 20030326
  2. G-CSF [Suspect]
     Dosage: 5 MEQ/KG/DAY DAYS 2-21 OF EACH CYCLE
  3. VINORELBINE [Suspect]
     Dosage: 27.5 MG/M2, DAYS 8 AND 15, EVERY 21 DAYS

REACTIONS (1)
  - DISEASE PROGRESSION [None]
